FAERS Safety Report 8887855 (Version 5)
Quarter: 2015Q3

REPORT INFORMATION
  Report Type: Report from Study
  Country: US (occurrence: US)
  Receive Date: 20121106
  Receipt Date: 20150703
  Transmission Date: 20151125
  Serious: Yes (Hospitalization)
  Sender: FDA-Public Use
  Company Number: US-BIOGENIDEC-2012BI049229

PATIENT
  Age: 53 Year
  Sex: Female

DRUGS (3)
  1. AVONEX [Suspect]
     Active Substance: INTERFERON BETA-1A
     Indication: MULTIPLE SCLEROSIS
     Route: 030
     Dates: start: 20060501, end: 201208
  2. AVONEX [Suspect]
     Active Substance: INTERFERON BETA-1A
     Indication: MULTIPLE SCLEROSIS
     Dates: start: 2012
  3. AVONEX [Suspect]
     Active Substance: INTERFERON BETA-1A
     Indication: MULTIPLE SCLEROSIS
     Route: 030
     Dates: start: 20000826

REACTIONS (19)
  - Scoliosis [Not Recovered/Not Resolved]
  - Intervertebral disc protrusion [Recovered/Resolved]
  - Herpes zoster [Recovered/Resolved with Sequelae]
  - Oxygen saturation decreased [Recovered/Resolved]
  - Blood alkaline phosphatase increased [Unknown]
  - Multiple sclerosis relapse [Not Recovered/Not Resolved]
  - Wound infection staphylococcal [Recovered/Resolved]
  - Rash pustular [Recovered/Resolved]
  - Rash pruritic [Not Recovered/Not Resolved]
  - Feeling hot [Recovered/Resolved]
  - Hepatic enzyme abnormal [Unknown]
  - Spinal column stenosis [Not Recovered/Not Resolved]
  - Blood urea increased [Unknown]
  - Glomerular filtration rate decreased [Unknown]
  - Laboratory test abnormal [Recovered/Resolved]
  - Eosinophil count increased [Unknown]
  - Sciatica [Unknown]
  - Migraine with aura [Not Recovered/Not Resolved]
  - Alanine aminotransferase increased [Unknown]

NARRATIVE: CASE EVENT DATE: 200010
